FAERS Safety Report 17272532 (Version 1)
Quarter: 2020Q1

REPORT INFORMATION
  Report Type: Spontaneous
  Country: US (occurrence: US)
  Receive Date: 20191223
  Receipt Date: 20191223
  Transmission Date: 20200409
  Serious: Yes (Hospitalization)
  Sender: FDA-Public Use
  Company Number: None

PATIENT
  Age: 65 Year
  Sex: Male
  Weight: 89 kg

DRUGS (1)
  1. LISINOPRIL. [Suspect]
     Active Substance: LISINOPRIL
     Indication: DIABETES MELLITUS
     Route: 048
     Dates: start: 19990402, end: 20191101

REACTIONS (3)
  - Swollen tongue [None]
  - Oropharyngeal pain [None]
  - Angioedema [None]

NARRATIVE: CASE EVENT DATE: 20191030
